FAERS Safety Report 5944974-6 (Version None)
Quarter: 2008Q4

REPORT INFORMATION
  Report Type: 
  Country: None (occurrence: None)
  Receive Date: 20081107
  Receipt Date: 20081103
  Transmission Date: 20090506
  Serious: Yes (Hospitalization)
  Sender: FDA-Public Use
  Company Number: FR-MERCK-0811FRA00002

PATIENT
  Age: 61 Year
  Sex: Female

DRUGS (3)
  1. PRIMAXIN [Suspect]
     Indication: PNEUMONIA
     Route: 042
     Dates: start: 20080526, end: 20080527
  2. AMIKACIN SULFATE [Concomitant]
     Indication: PNEUMONIA
     Route: 041
     Dates: start: 20080526
  3. TACROLIMUS [Concomitant]
     Route: 065

REACTIONS (1)
  - GENERALISED ERYTHEMA [None]
